FAERS Safety Report 21940963 (Version 1)
Quarter: 2023Q1

REPORT INFORMATION
  Report Type: Report from Study
  Country: US (occurrence: US)
  Receive Date: 20230202
  Receipt Date: 20230202
  Transmission Date: 20230417
  Serious: No
  Sender: FDA-Public Use
  Company Number: US-EXELIXIS-CABO-22052696

PATIENT
  Age: 49 Year
  Sex: Female

DRUGS (1)
  1. CABOMETYX [Suspect]
     Active Substance: CABOZANTINIB S-MALATE
     Indication: Product used for unknown indication
     Dosage: 60 MG, QD
     Route: 048
     Dates: start: 202203

REACTIONS (13)
  - Acne [Unknown]
  - Blood urine present [Unknown]
  - Gingival bleeding [Unknown]
  - Dysuria [Unknown]
  - Thirst [Unknown]
  - Rectal ulcer [Unknown]
  - Pruritus [Unknown]
  - Asthenia [Unknown]
  - Vomiting [Recovered/Resolved]
  - Fatigue [Unknown]
  - Dizziness [Unknown]
  - Diarrhoea [Unknown]
  - Stomatitis [Unknown]

NARRATIVE: CASE EVENT DATE: 20220529
